FAERS Safety Report 4283732-8 (Version None)
Quarter: 2004Q1

REPORT INFORMATION
  Report Type: 
  Country: None (occurrence: None)
  Receive Date: 20040115
  Receipt Date: 20030203
  Transmission Date: 20041129
  Serious: Yes (Hospitalization)
  Sender: FDA-Public Use
  Company Number: NSADSS2003005408

PATIENT
  Age: 81 Year
  Sex: Male

DRUGS (1)
  1. DOXIL [Suspect]
     Indication: MESOTHELIOMA MALIGNANT
     Dosage: 55 MG, INTRAVENOUS DRIP
     Route: 041
     Dates: start: 20021203, end: 20021226

REACTIONS (3)
  - NAUSEA [None]
  - VOMITING [None]
  - WEIGHT DECREASED [None]
